FAERS Safety Report 9188430 (Version 1)
Quarter: 2012Q4

REPORT INFORMATION
  Report Type: 
  Country: BR (occurrence: BR)
  Receive Date: 20121205
  Receipt Date: 20121205
  Transmission Date: 20130627
  Serious: Yes (Other)
  Sender: FDA-Public Use
  Company Number: PHHY2012BR111141

PATIENT
  Sex: Male

DRUGS (1)
  1. EXELON PATCH [Suspect]
     Indication: COGNITIVE DISORDER
     Dosage: 4.6 mg / 24 Hrs, QD
     Route: 062
     Dates: start: 2010

REACTIONS (2)
  - Prostate cancer [Unknown]
  - Gastrointestinal motility disorder [Unknown]
